FAERS Safety Report 10141778 (Version 1)
Quarter: 2014Q2

REPORT INFORMATION
  Report Type: Spontaneous
  Country: US (occurrence: US)
  Receive Date: 20140429
  Receipt Date: 20140429
  Transmission Date: 20141212
  Serious: Yes (Other)
  Sender: FDA-Public Use
  Company Number: US-TEVA-477634USA

PATIENT
  Age: 55 Year
  Sex: Female
  Weight: 67.65 kg

DRUGS (2)
  1. BENDAMUSTINE [Suspect]
     Indication: NON-HODGKIN^S LYMPHOMA
     Route: 042
     Dates: start: 201104, end: 20110811
  2. RITUXAN [Concomitant]
     Indication: NON-HODGKIN^S LYMPHOMA
     Dates: start: 201104, end: 201309

REACTIONS (2)
  - Non-Hodgkin^s lymphoma recurrent [Unknown]
  - Renal disorder [Unknown]
